FAERS Safety Report 25718888 (Version 1)
Quarter: 2025Q3

REPORT INFORMATION
  Report Type: Report from Study
  Country: CA (occurrence: CA)
  Receive Date: 20250823
  Receipt Date: 20250823
  Transmission Date: 20251021
  Serious: Yes (Hospitalization)
  Sender: ABBVIE
  Company Number: CA-ABBVIE-6425933

PATIENT
  Age: 86 Year
  Sex: Male

DRUGS (1)
  1. LUPRON [Suspect]
     Active Substance: LEUPROLIDE ACETATE
     Indication: Prostate cancer
     Route: 030
     Dates: start: 20220507

REACTIONS (4)
  - Localised infection [Not Recovered/Not Resolved]
  - Pain in extremity [Unknown]
  - Skin laceration [Unknown]
  - Wound [Unknown]

NARRATIVE: CASE EVENT DATE: 20250101
